FAERS Safety Report 8260298-9 (Version None)
Quarter: 2012Q2

REPORT INFORMATION
  Report Type: 
  Country: None (occurrence: None)
  Receive Date: 20120404
  Receipt Date: 20120327
  Transmission Date: 20120825
  Serious: Yes (Disabling)
  Sender: FDA-Public Use
  Company Number: GB-TEVA-331039ISR

PATIENT
  Age: 3 Year
  Sex: Male

DRUGS (4)
  1. CLARITHROMYCIN [Concomitant]
     Route: 018
     Dates: start: 20120302
  2. PYRIDOXINE HCL [Concomitant]
     Route: 048
     Dates: start: 20120302
  3. VALPROIC ACID [Suspect]
     Indication: EPILEPSY
     Route: 048
     Dates: start: 20120302
  4. ACYCLOVIR [Concomitant]
     Route: 040
     Dates: start: 20120302

REACTIONS (2)
  - HALLUCINATION [None]
  - ENCEPHALITIS [None]
